FAERS Safety Report 11001725 (Version 2)
Quarter: 2015Q2

REPORT INFORMATION
  Report Type: Report from Study
  Country: JP (occurrence: JP)
  Receive Date: 20150408
  Receipt Date: 20150413
  Transmission Date: 20150821
  Serious: Yes (Hospitalization)
  Sender: FDA-Public Use
  Company Number: JP-EISAI MEDICAL RESEARCH-EC-2015-005748

PATIENT
  Age: 82 Year
  Sex: Male

DRUGS (11)
  1. MUCOSOLVAN [Concomitant]
     Active Substance: AMBROXOL\CLENBUTEROL
  2. SPIRIVA [Concomitant]
     Active Substance: TIOTROPIUM BROMIDE MONOHYDRATE
  3. ROCALTROL [Concomitant]
     Active Substance: CALCITRIOL
  4. NORVASC [Concomitant]
     Active Substance: AMLODIPINE BESYLATE
  5. UNIPHYL LA [Concomitant]
     Active Substance: THEOPHYLLINE ANHYDROUS
  6. TSUMURA YOKUKANSAN [Concomitant]
  7. ALOSITOL [Concomitant]
     Active Substance: ALLOPURINOL
  8. ARICEPT [Suspect]
     Active Substance: DONEPEZIL HYDROCHLORIDE
     Indication: DEMENTIA ALZHEIMER^S TYPE
     Route: 048
     Dates: start: 20140301, end: 20140307
  9. ARICEPT [Suspect]
     Active Substance: DONEPEZIL HYDROCHLORIDE
     Route: 048
     Dates: start: 20140318
  10. ERYTHROCIN [Concomitant]
     Active Substance: ERYTHROMYCIN LACTOBIONATE
  11. SIGMART [Concomitant]
     Active Substance: NICORANDIL

REACTIONS (1)
  - Femur fracture [Unknown]

NARRATIVE: CASE EVENT DATE: 20150209
